FAERS Safety Report 9191237 (Version 2)
Quarter: 2013Q2

REPORT INFORMATION
  Report Type: Spontaneous
  Country: DE (occurrence: DE)
  Receive Date: 20130326
  Receipt Date: 20130516
  Transmission Date: 20140414
  Serious: Yes (Life-Threatening)
  Sender: FDA-Public Use
  Company Number: DE-TEVA-393560GER

PATIENT
  Age: 69 Year
  Sex: Male
  Weight: 70 kg

DRUGS (2)
  1. METHOTREXAT [Suspect]
     Indication: PSORIASIS
     Route: 048
  2. ENBREL [Suspect]
     Indication: PSORIASIS
     Route: 058

REACTIONS (1)
  - Renal cell carcinoma [Unknown]
